FAERS Safety Report 21524122 (Version 1)
Quarter: 2022Q4

REPORT INFORMATION
  Report Type: Spontaneous
  Country: FR (occurrence: FR)
  Receive Date: 20221029
  Receipt Date: 20221029
  Transmission Date: 20230113
  Serious: Yes (Other)
  Sender: FDA-Public Use
  Company Number: None

PATIENT
  Age: 68 Year
  Sex: Male
  Weight: 80 kg

DRUGS (4)
  1. KETOCONAZOLE [Suspect]
     Active Substance: KETOCONAZOLE
     Indication: Rash papular
     Dosage: DURATION : 1.5 MONTH
     Route: 065
     Dates: start: 202206, end: 202208
  2. LAMISIL [Suspect]
     Active Substance: TERBINAFINE HYDROCHLORIDE
     Indication: Rash papular
     Route: 065
     Dates: start: 202206, end: 202208
  3. CLOBETASOL PROPIONATE [Suspect]
     Active Substance: CLOBETASOL PROPIONATE
     Indication: Rash papular
     Dosage: DURATION : 1.5 MONTHS
     Route: 065
     Dates: start: 202206, end: 202208
  4. BETADINE [Suspect]
     Active Substance: POVIDONE-IODINE
     Indication: Rash papular
     Dosage: DURATION : 1 MONTH
     Route: 065
     Dates: start: 202207, end: 202208

REACTIONS (1)
  - Chemical burn [Recovered/Resolved]

NARRATIVE: CASE EVENT DATE: 20220801
